FAERS Safety Report 5260290-2 (Version None)
Quarter: 2007Q1

REPORT INFORMATION
  Report Type: 
  Country: None (occurrence: None)
  Receive Date: 20070309
  Receipt Date: 20060623
  Transmission Date: 20070707
  Serious: No
  Sender: FDA-Public Use
  Company Number: US-GLAXOSMITHKLINE-A0609952A

PATIENT
  Age: 63 Year
  Sex: Male

DRUGS (2)
  1. NICORETTE [Suspect]
  2. NICORETTE [Suspect]
     Dates: start: 20060526

REACTIONS (5)
  - DYSPHAGIA [None]
  - EATING DISORDER [None]
  - HICCUPS [None]
  - NAUSEA [None]
  - PHARYNGOLARYNGEAL PAIN [None]
